FAERS Safety Report 5342103-3 (Version None)
Quarter: 2007Q2

REPORT INFORMATION
  Report Type: 
  Country: None (occurrence: None)
  Receive Date: 20070601
  Receipt Date: 20070529
  Transmission Date: 20071010
  Serious: Yes (Hospitalization)
  Sender: FDA-Public Use
  Company Number: JP-BRISTOL-MYERS SQUIBB COMPANY-13240973

PATIENT
  Age: 68 Year
  Sex: Male

DRUGS (5)
  1. SOTACOR TABS 80 MG [Suspect]
     Indication: VENTRICULAR TACHYCARDIA
     Dosage: 120 MG 2/D STARTED 22-OCT-2005
     Route: 048
     Dates: start: 20031022
  2. ACECOL [Suspect]
     Dosage: 2 MG QD STARTED 22OCT-2005 TO 21OCT-2006
     Route: 048
     Dates: start: 20031022
  3. ALLOPURINOL [Suspect]
     Dosage: 22OCT05 TO 21OCT06
     Route: 048
     Dates: start: 20031022
  4. GASTER D [Suspect]
     Dosage: 22OCT05 TO 21OCT06
     Route: 048
     Dates: start: 20031022
  5. SELBEX [Concomitant]
     Dosage: SUSPECT DRUG 22OCT05 TO 21OCT06
     Route: 048
     Dates: start: 20031022

REACTIONS (3)
  - ACUTE HEPATIC FAILURE [None]
  - HEPATIC FUNCTION ABNORMAL [None]
  - PLATELET COUNT DECREASED [None]
